FAERS Safety Report 19299279 (Version 1)
Quarter: 2021Q2

REPORT INFORMATION
  Report Type: Other
  Country: CA (occurrence: CA)
  Receive Date: 20210525
  Receipt Date: 20210525
  Transmission Date: 20210717
  Serious: Yes (Hospitalization, Other)
  Sender: FDA-Public Use
  Company Number: CA-APOTEX-2021AP012211

PATIENT
  Age: 34 Year
  Sex: Male
  Weight: 94 kg

DRUGS (1)
  1. APO?AMOXI CLAV [Suspect]
     Active Substance: AMOXICILLIN\CLAVULANATE POTASSIUM
     Indication: CELLULITIS
     Dosage: 875 MILLIGRAM, BID
     Route: 048

REACTIONS (5)
  - Pharyngeal paraesthesia [Unknown]
  - Drug reaction with eosinophilia and systemic symptoms [Unknown]
  - Throat tightness [Unknown]
  - Rash [Unknown]
  - Acute generalised exanthematous pustulosis [Unknown]
